FAERS Safety Report 23240405 (Version 1)
Quarter: 2023Q4

REPORT INFORMATION
  Report Type: Spontaneous
  Country: US (occurrence: None)
  Receive Date: 20231128
  Receipt Date: 20231128
  Transmission Date: 20240110
  Serious: Yes (Hospitalization)
  Sender: FDA-Public Use
  Company Number: None

PATIENT
  Age: 68 Year
  Sex: Female
  Weight: 68.9 kg

DRUGS (3)
  1. KEYTRUDA [Suspect]
     Active Substance: PEMBROLIZUMAB
     Indication: Endometrial cancer recurrent
     Dosage: OTHER FREQUENCY : EVERY THREE WEEKS.;?
     Route: 042
     Dates: start: 20230801, end: 20231010
  2. LENVIMA [Suspect]
     Active Substance: LENVATINIB
     Indication: Endometrial cancer recurrent
     Dosage: FREQUENCY : DAILY;?
     Route: 042
     Dates: start: 20230801, end: 20231106
  3. PACLITAXEL [Suspect]
     Active Substance: PACLITAXEL

REACTIONS (10)
  - Refusal of treatment by patient [None]
  - Nausea [None]
  - Vomiting [None]
  - Abdominal pain [None]
  - Biliary dilatation [None]
  - Depressed level of consciousness [None]
  - Facial paralysis [None]
  - Muscular weakness [None]
  - Carotid artery stenosis [None]
  - Cerebrovascular accident [None]

NARRATIVE: CASE EVENT DATE: 20231127
